FAERS Safety Report 20875954 (Version 3)
Quarter: 2022Q3

REPORT INFORMATION
  Report Type: Spontaneous
  Country: US (occurrence: US)
  Receive Date: 20220526
  Receipt Date: 20220811
  Transmission Date: 20221026
  Serious: No
  Sender: FDA-Public Use
  Company Number: US-EXELIXIS-CABO-22051556

PATIENT
  Age: 65 Year
  Sex: Female

DRUGS (10)
  1. NIVOLUMAB [Suspect]
     Active Substance: NIVOLUMAB
     Indication: Renal cell carcinoma
     Route: 065
  2. CABOMETYX [Suspect]
     Active Substance: CABOZANTINIB S-MALATE
     Indication: Renal cell carcinoma
     Route: 065
     Dates: start: 20220409
  3. INSULINA ISOFANA [Concomitant]
     Route: 065
  4. INSULINA ISOFANA [Concomitant]
     Indication: Product used for unknown indication
  5. GLIPIZIDE [Concomitant]
     Active Substance: GLIPIZIDE
     Indication: Product used for unknown indication
     Route: 065
  6. VYLKOR [Concomitant]
     Route: 065
  7. VYLKOR [Concomitant]
     Indication: Product used for unknown indication
     Route: 065
  8. ZEJULA [Concomitant]
     Active Substance: NIRAPARIB
     Route: 065
  9. ZEJULA [Concomitant]
     Active Substance: NIRAPARIB
     Indication: Product used for unknown indication
     Route: 065
  10. METFORMIN [Concomitant]
     Active Substance: METFORMIN HYDROCHLORIDE
     Indication: Product used for unknown indication
     Dosage: UNK
     Route: 065

REACTIONS (14)
  - Pulmonary pain [Not Recovered/Not Resolved]
  - Renal pain [Recovered/Resolved]
  - Back pain [Not Recovered/Not Resolved]
  - Nausea [Recovered/Resolved]
  - Vomiting [Recovered/Resolved]
  - Stomatitis [Recovered/Resolved]
  - Fatigue [Not Recovered/Not Resolved]
  - Blood pressure increased [Not Recovered/Not Resolved]
  - Abdominal pain upper [Recovered/Resolved]
  - Dizziness [Recovered/Resolved]
  - Decreased appetite [Not Recovered/Not Resolved]
  - Dysgeusia [Recovering/Resolving]
  - Constipation [Recovering/Resolving]
  - Headache [Recovered/Resolved]
